FAERS Safety Report 14581719 (Version 1)
Quarter: 2018Q1

REPORT INFORMATION
  Report Type: Spontaneous
  Country: US (occurrence: US)
  Receive Date: 20180228
  Receipt Date: 20180228
  Transmission Date: 20180509
  Serious: No
  Sender: FDA-Public Use
  Company Number: US-TEVA-2018-US-855804

PATIENT
  Age: 68 Year
  Sex: Male

DRUGS (5)
  1. RITUXIMAB. [Concomitant]
     Active Substance: RITUXIMAB
     Indication: PEMPHIGOID
     Dosage: 900 MG/WK FOR 8 WEEKS THEN GIVEN MONTHLY FOR 6 MONTHS
     Route: 065
  2. RITUXIMAB. [Concomitant]
     Active Substance: RITUXIMAB
     Indication: PEMPHIGOID
     Dosage: 1 G GIVEN TWICE IN 1 MONTH REPEATED 6 MONTHS LATER
     Route: 065
  3. PREDNISONE. [Suspect]
     Active Substance: PREDNISONE
     Indication: PEMPHIGOID
     Dosage: 60 MILLIGRAM DAILY;
     Route: 048
  4. BORTEZOMIB [Suspect]
     Active Substance: BORTEZOMIB
     Indication: PEMPHIGOID
     Dosage: ROUTE: INFUSION; DOSAGE: 1.3 MG/M2 ON DAYS 1, 4, 8, AND 11 (4 CYCLES FOR OVER 10 MONTHS).
     Route: 065
  5. RITUXIMAB. [Concomitant]
     Active Substance: RITUXIMAB
     Indication: PEMPHIGOID
     Dosage: 900 MG/WK FOR 8 WEEKS THEN GIVEN MONTHLY FOR 6 MONTHS
     Route: 065

REACTIONS (1)
  - Myopathy [Unknown]
